FAERS Safety Report 5386764-1 (Version None)
Quarter: 2007Q3

REPORT INFORMATION
  Report Type: 
  Country: None (occurrence: None)
  Receive Date: 20070713
  Receipt Date: 20070703
  Transmission Date: 20080115
  Serious: Yes (Other)
  Sender: FDA-Public Use
  Company Number: PHEH2007US09594

PATIENT
  Sex: Female

DRUGS (1)
  1. DIOVAN HCT [Suspect]
     Dosage: UNK, UNK
     Dates: start: 20070501, end: 20070601

REACTIONS (2)
  - CONDITION AGGRAVATED [None]
  - RENAL DISORDER [None]
